FAERS Safety Report 7476768-7 (Version None)
Quarter: 2011Q2

REPORT INFORMATION
  Report Type: 
  Country: None (occurrence: None)
  Receive Date: 20110512
  Receipt Date: 20110422
  Transmission Date: 20111010
  Serious: No
  Sender: FDA-Public Use
  Company Number: US-B.I. PHARMACEUTICALS,INC./RIDGEFIELD-2011-BP-08392BP

PATIENT
  Sex: Female

DRUGS (7)
  1. CALCIUM TABLETS [Concomitant]
  2. SPIRIVA [Suspect]
     Indication: CHRONIC OBSTRUCTIVE PULMONARY DISEASE
     Dosage: 18 MCG
     Route: 055
     Dates: start: 20071201
  3. ASTELIN [Concomitant]
  4. FISH OIL [Concomitant]
  5. VITAMIN D [Concomitant]
  6. VITAMIN C [Concomitant]
  7. MULTI-VITAMINS [Concomitant]

REACTIONS (2)
  - FATIGUE [None]
  - DYSPNOEA [None]
